FAERS Safety Report 6204060-7 (Version None)
Quarter: 2009Q2

REPORT INFORMATION
  Report Type: 
  Country: None (occurrence: None)
  Receive Date: 20090527
  Receipt Date: 20090521
  Transmission Date: 20091009
  Serious: Yes (Other)
  Sender: FDA-Public Use
  Company Number: US-JNJFOC-20090505837

PATIENT
  Age: 64 Year
  Sex: Male
  Weight: 64.41 kg

DRUGS (6)
  1. IMODIUM A-D [Suspect]
     Route: 048
  2. IMODIUM A-D [Suspect]
     Indication: DIARRHOEA
     Route: 048
  3. ATENOLOL [Concomitant]
     Indication: HYPERTENSION
  4. ACETYLSALICYLIC ACID SRT [Concomitant]
     Indication: ANTICOAGULANT THERAPY
  5. VALIUM [Concomitant]
     Indication: ANXIETY
     Dosage: EVERY FOUR HOURS
  6. ZOLOFT [Concomitant]
     Indication: ANTIDEPRESSANT THERAPY

REACTIONS (2)
  - ABDOMINAL DISTENSION [None]
  - DIARRHOEA HAEMORRHAGIC [None]
